FAERS Safety Report 9718231 (Version 1)
Quarter: 2013Q4

REPORT INFORMATION
  Report Type: Spontaneous
  Country: US (occurrence: US)
  Receive Date: 20131125
  Receipt Date: 20131125
  Transmission Date: 20140711
  Serious: No
  Sender: FDA-Public Use
  Company Number: US-VIVUS-2013V1000099

PATIENT
  Age: 61 Year
  Sex: Female
  Weight: 79.45 kg

DRUGS (1)
  1. QSYMIA 3.75MG/23MG [Suspect]
     Indication: OBESITY
     Route: 048
     Dates: start: 20130201, end: 20130214

REACTIONS (4)
  - Dizziness [Unknown]
  - Memory impairment [Unknown]
  - Mental impairment [Unknown]
  - Headache [Not Recovered/Not Resolved]
